FAERS Safety Report 11349868 (Version 1)
Quarter: 2015Q3

REPORT INFORMATION
  Report Type: Spontaneous
  Country: US (occurrence: None)
  Receive Date: 20150806
  Receipt Date: 20150806
  Transmission Date: 20151125
  Serious: Yes (Other)
  Sender: FDA-Public Use
  Company Number: None

PATIENT
  Age: 51 Year
  Sex: Female
  Weight: 63.05 kg

DRUGS (7)
  1. EVENING PRIMROSE OIL [Concomitant]
     Active Substance: EVENING PRIMROSE OIL
  2. FISH OIL OMEGA 3 CONCENTRATE [Concomitant]
     Active Substance: FISH OIL
  3. BIOTIN [Concomitant]
     Active Substance: BIOTIN
  4. PAULA^S CHOICE RESIST WEEKLY FOAMING TREATMENT 4% BHA [Suspect]
     Active Substance: SALICYLIC ACID
     Indication: ACNE
     Dosage: ONE PUMP ONCE OR TWICE WEEK APPLIED TO A SURFACE, USUALLY THE SKIN
     Route: 061
     Dates: start: 20140630, end: 20150620
  5. PAULA^S CHOICE RESIST WEEKLY FOAMING TREATMENT 4% BHA [Suspect]
     Active Substance: SALICYLIC ACID
     Indication: THERAPEUTIC SKIN CARE TOPICAL
     Dosage: ONE PUMP ONCE OR TWICE WEEK APPLIED TO A SURFACE, USUALLY THE SKIN
     Route: 061
     Dates: start: 20140630, end: 20150620
  6. DAILY WOMEN MULTI VITAMIN [Concomitant]
  7. D3 [Concomitant]
     Active Substance: 25-HYDROXYCHOLECALCIFEROL, 5-TRANS-

REACTIONS (11)
  - Product expiration date issue [None]
  - Eye pruritus [None]
  - Eye swelling [None]
  - Headache [None]
  - Drug hypersensitivity [None]
  - Erythema [None]
  - Swelling face [None]
  - Rash erythematous [None]
  - Lacrimation increased [None]
  - Abdominal pain upper [None]
  - Tinnitus [None]

NARRATIVE: CASE EVENT DATE: 20150611
